FAERS Safety Report 4289353-5 (Version None)
Quarter: 2004Q1

REPORT INFORMATION
  Report Type: 
  Country: None (occurrence: None)
  Receive Date: 20040203
  Receipt Date: 20021218
  Transmission Date: 20041129
  Serious: Yes (Other)
  Sender: FDA-Public Use
  Company Number: 200227660BWH

PATIENT
  Age: 35 Year
  Sex: Female
  Weight: 58.0604 kg

DRUGS (4)
  1. AVELOX [Suspect]
     Indication: SINUSITIS
     Dosage: 400 MG, QD, ORAL
     Route: 048
     Dates: start: 20021206, end: 20021208
  2. NASONEX [Concomitant]
  3. PULMICORT [Concomitant]
  4. XOPENEX [Concomitant]

REACTIONS (2)
  - CHEST PAIN [None]
  - TENDONITIS [None]
